FAERS Safety Report 18636361 (Version 2)
Quarter: 2021Q3

REPORT INFORMATION
  Report Type: Spontaneous
  Country: PT (occurrence: PT)
  Receive Date: 20201218
  Receipt Date: 20210812
  Transmission Date: 20211014
  Serious: Yes (Other)
  Sender: FDA-Public Use
  Company Number: PT-MYLANLABS-2020M1101348

PATIENT
  Age: 72 Year
  Sex: Male

DRUGS (4)
  1. ONGENTYS [Suspect]
     Active Substance: OPICAPONE
     Indication: PRODUCT USED FOR UNKNOWN INDICATION
     Dosage: UNK
     Dates: start: 202010
  2. SINEMET [Suspect]
     Active Substance: CARBIDOPA\LEVODOPA
     Indication: PARKINSON^S DISEASE
     Dosage: STRENGTH: 25/100 (UNITS NOT SPECIFIED), DOSE: 2 TABLETS OF CARBIDOPA (+) LEVODOPA (SINEMET), EVERY 2
     Route: 048
  3. RIVASTIGMINE. [Suspect]
     Active Substance: RIVASTIGMINE
     Indication: PRODUCT USED FOR UNKNOWN INDICATION
     Dosage: UNK
     Route: 062
  4. MADOPAR [Suspect]
     Active Substance: BENSERAZIDE HYDROCHLORIDE\LEVODOPA
     Indication: PRODUCT USED FOR UNKNOWN INDICATION
     Dosage: 2 TABLETS
     Route: 048

REACTIONS (18)
  - Autonomic nervous system imbalance [Unknown]
  - Depression [Recovering/Resolving]
  - Parkinson^s disease [Not Recovered/Not Resolved]
  - Hypotension [Not Recovered/Not Resolved]
  - Dyspnoea [Recovered/Resolved]
  - Hallucination [Recovered/Resolved]
  - Hand deformity [Unknown]
  - Feeling hot [Not Recovered/Not Resolved]
  - Overdose [Recovered/Resolved]
  - Unresponsive to stimuli [Unknown]
  - Malaise [Not Recovered/Not Resolved]
  - Peripheral swelling [Unknown]
  - Heart rate decreased [Unknown]
  - Increased appetite [Unknown]
  - Arrhythmia [Recovered/Resolved]
  - Speech disorder [Unknown]
  - Functional gastrointestinal disorder [Unknown]
  - Mania [Not Recovered/Not Resolved]
